FAERS Safety Report 5250271-7 (Version None)
Quarter: 2007Q1

REPORT INFORMATION
  Report Type: 
  Country: None (occurrence: None)
  Receive Date: 20070228
  Receipt Date: 20060314
  Transmission Date: 20070707
  Serious: No
  Sender: FDA-Public Use
  Company Number: US-GLAXOSMITHKLINE-A0597540A

PATIENT
  Age: 69 Year
  Sex: Female

DRUGS (4)
  1. LAMICTAL [Suspect]
     Indication: BIPOLAR DISORDER
     Dosage: 125MG PER DAY
     Route: 048
  2. LEXAPRO [Concomitant]
  3. ESGIC-PLUS [Concomitant]
  4. VALIUM [Concomitant]

REACTIONS (1)
  - TREMOR [None]
